FAERS Safety Report 12400836 (Version 1)
Quarter: 2016Q2

REPORT INFORMATION
  Report Type: Spontaneous
  Country: US (occurrence: None)
  Receive Date: 20160524
  Receipt Date: 20160524
  Transmission Date: 20160815
  Serious: No
  Sender: FDA-Public Use
  Company Number: None

PATIENT
  Age: 60 Year
  Sex: Female

DRUGS (8)
  1. ATIVAN [Concomitant]
     Active Substance: LORAZEPAM
  2. IBRANCE [Suspect]
     Active Substance: PALBOCICLIB
     Indication: NEOPLASM MALIGNANT
     Route: 048
     Dates: start: 201602
  3. COENZYME Q10 [Concomitant]
     Active Substance: UBIDECARENONE
  4. CALCIUM D3 [Concomitant]
     Active Substance: CALCIUM\CHOLECALCIFEROL
  5. ZOLOFT [Concomitant]
     Active Substance: SERTRALINE HYDROCHLORIDE
  6. GINGKO BILOB [Concomitant]
  7. RED YEAST CAB [Concomitant]
  8. FEMARA [Concomitant]
     Active Substance: LETROZOLE

REACTIONS (2)
  - Hot flush [None]
  - Nausea [None]

NARRATIVE: CASE EVENT DATE: 2016
